FAERS Safety Report 10753748 (Version 1)
Quarter: 2015Q1

REPORT INFORMATION
  Report Type: Spontaneous
  Country: CA (occurrence: None)
  Receive Date: 20150129
  Receipt Date: 20150129
  Transmission Date: 20150721
  Serious: Yes (Death)
  Sender: FDA-Public Use
  Company Number: COR_00237_2015

PATIENT
  Age: 4 Month
  Sex: Female

DRUGS (6)
  1. THIOTEPA (THIOTEPA) [Suspect]
     Active Substance: THIOTEPA
     Indication: ATYPICAL TERATOID/RHABDOID TUMOUR OF CNS
     Dosage: [PER DAY, FOR 2 DAYS ON DAYS -3 AND -2 BEFORE SCT, FOR 3 CYCLES]
  2. METHOTREXATE [Concomitant]
     Active Substance: METHOTREXATE
  3. CYCLOPHOSPHAMIDE. [Concomitant]
     Active Substance: CYCLOPHOSPHAMIDE
  4. CARBOPLATIN (CARBOPLATIN) [Suspect]
     Active Substance: CARBOPLATIN
     Indication: ATYPICAL TERATOID/RHABDOID TUMOUR OF CNS
     Dosage: PER DAY, FOR 2 DAYS, FOR 3 CYCLES GIVEN PRIOR TO SCT
  5. CISPLATIN. [Concomitant]
     Active Substance: CISPLATIN
  6. VINCRISTINE [Concomitant]
     Active Substance: VINCRISTINE

REACTIONS (1)
  - Pulmonary arterial hypertension [None]
